FAERS Safety Report 18509954 (Version 1)
Quarter: 2020Q4

REPORT INFORMATION
  Report Type: Report from Study
  Country: US (occurrence: US)
  Receive Date: 20201117
  Receipt Date: 20201117
  Transmission Date: 20210114
  Serious: Yes (Other)
  Sender: FDA-Public Use
  Company Number: US-PFIZER INC-2020431272

PATIENT
  Age: 71 Year
  Sex: Male

DRUGS (2)
  1. INTERFERON ALFA-2A RECOMBINANT [Suspect]
     Active Substance: INTERFERON ALFA-2A
     Indication: LYMPHOMA
     Dosage: 10 X10^6 UNITS/M2 S.C. 3 TIMES PER WEEK
     Route: 058
  2. DOXORUBICIN HCL [Suspect]
     Active Substance: DOXORUBICIN HYDROCHLORIDE
     Indication: LYMPHOMA
     Dosage: 220 MG/M2

REACTIONS (1)
  - Atrial fibrillation [Unknown]
